FAERS Safety Report 20437449 (Version 1)
Quarter: 2022Q1

REPORT INFORMATION
  Report Type: Spontaneous
  Country: US (occurrence: US)
  Receive Date: 20220207
  Receipt Date: 20220207
  Transmission Date: 20220423
  Serious: Yes (Hospitalization)
  Sender: FDA-Public Use
  Company Number: US-TAKEDA-2022TUS005958

PATIENT
  Age: 74 Year
  Sex: Female

DRUGS (1)
  1. GAMMAGARD LIQUID [Suspect]
     Active Substance: HUMAN IMMUNOGLOBULIN G
     Indication: Immune thrombocytopenia
     Dosage: 100 GRAM
     Route: 065

REACTIONS (2)
  - Hospitalisation [Unknown]
  - Full blood count increased [Unknown]

NARRATIVE: CASE EVENT DATE: 20211201
